FAERS Safety Report 8098589-7 (Version None)
Quarter: 2012Q1

REPORT INFORMATION
  Report Type: 
  Country: None (occurrence: None)
  Receive Date: 20120129
  Receipt Date: 20110922
  Transmission Date: 20120608
  Serious: Yes (Hospitalization)
  Sender: FDA-Public Use
  Company Number: US-ABBOTT-11P-163-0857786-00

PATIENT
  Sex: Female
  Weight: 72.64 kg

DRUGS (5)
  1. HUMIRA [Suspect]
     Route: 058
     Dates: start: 20110701, end: 20110701
  2. HUMIRA [Suspect]
     Indication: CROHN'S DISEASE
     Route: 058
     Dates: start: 20100801, end: 20110410
  3. HUMIRA [Suspect]
     Route: 058
     Dates: start: 20110801
  4. HUMIRA [Suspect]
     Route: 058
     Dates: start: 20110701, end: 20110701
  5. MULTI-VITAMIN [Concomitant]
     Indication: VITAMIN SUPPLEMENTATION

REACTIONS (3)
  - VITAMIN B COMPLEX DEFICIENCY [None]
  - IRON DEFICIENCY [None]
  - ABDOMINAL PAIN [None]
